FAERS Safety Report 16819431 (Version 1)
Quarter: 2019Q3

REPORT INFORMATION
  Report Type: Spontaneous
  Country: AT (occurrence: AT)
  Receive Date: 20190917
  Receipt Date: 20190917
  Transmission Date: 20191005
  Serious: Yes (Other)
  Sender: FDA-Public Use
  Company Number: AT-ALLERGAN-1937591US

PATIENT
  Sex: Female

DRUGS (1)
  1. FOSFOMYCIN TROMETHAMINE - BP [Suspect]
     Active Substance: FOSFOMYCIN TROMETHAMINE
     Indication: PRODUCT USED FOR UNKNOWN INDICATION
     Dosage: 1 DF, SINGLE
     Route: 065
     Dates: start: 20190219, end: 20190219

REACTIONS (3)
  - Rash [Recovered/Resolved]
  - Flushing [Recovered/Resolved]
  - Type IV hypersensitivity reaction [Recovered/Resolved]

NARRATIVE: CASE EVENT DATE: 20190220
